FAERS Safety Report 6358090-5 (Version None)
Quarter: 2009Q3

REPORT INFORMATION
  Report Type: 
  Country: None (occurrence: None)
  Receive Date: 20090916
  Receipt Date: 20090910
  Transmission Date: 20100115
  Serious: Yes (Other)
  Sender: FDA-Public Use
  Company Number: D0062884A

PATIENT
  Age: 42 Year
  Sex: Male

DRUGS (2)
  1. CEFUHEXAL [Suspect]
     Indication: SINUSITIS
     Dosage: 250MG TWICE PER DAY
     Route: 048
  2. IBUPROFEN [Concomitant]
     Dosage: 600MG UNKNOWN
     Route: 048

REACTIONS (1)
  - HAEMORRHAGE [None]
